FAERS Safety Report 8279533 (Version 2)
Quarter: 2014Q4

REPORT INFORMATION
  Report Type: Spontaneous
  Country: GB (occurrence: None)
  Receive Date: 20111201
  Receipt Date: 20141006
  Transmission Date: 20150529
  Serious: Yes (Other)
  Sender: FDA-Public Use
  Company Number: 2011GB0337

PATIENT
  Age: 33 Year
  Sex: Male

DRUGS (7)
  1. KEPIVANCE [Suspect]
     Active Substance: PALIFERMIN
     Dosage: (5 MG,DAY1, DAY2, DAY3) INTRAVENOUS
     Route: 042
     Dates: start: 20111112, end: 20111114
  2. ACICLOVIR (ACICLOVIR) [Concomitant]
     Active Substance: ACYCLOVIR
  3. LANSOPRAZOLE (LANSOPRAZOLE) [Concomitant]
     Active Substance: LANSOPRAZOLE
  4. KEPIVANCE [Suspect]
     Active Substance: PALIFERMIN
     Indication: STOMATITIS
     Dosage: (5 MG,DAY1, DAY2, DAY3) INTRAVENOUS
     Route: 042
     Dates: start: 20111112, end: 20111114
  5. METOCLOPRAMIDE. [Concomitant]
     Active Substance: METOCLOPRAMIDE
  6. VORICONAZOLE. [Concomitant]
     Active Substance: VORICONAZOLE
  7. ACETAMINOPHEN. [Concomitant]
     Active Substance: ACETAMINOPHEN

REACTIONS (3)
  - Drug hypersensitivity [None]
  - Toxicity to various agents [None]
  - Drug intolerance [None]

NARRATIVE: CASE EVENT DATE: 20111111
